FAERS Safety Report 12659253 (Version 5)
Quarter: 2016Q4

REPORT INFORMATION
  Report Type: Report from Study
  Country: CO (occurrence: CO)
  Receive Date: 20160817
  Receipt Date: 20161209
  Transmission Date: 20170207
  Serious: Yes (Death, Hospitalization)
  Sender: FDA-Public Use
  Company Number: PHHY2016CO111978

PATIENT
  Age: 41 Year
  Sex: Male
  Weight: 80 kg

DRUGS (4)
  1. TASIGNA [Suspect]
     Active Substance: NILOTINIB
     Indication: CHRONIC MYELOID LEUKAEMIA
     Dosage: 200 MG, QID
     Route: 048
     Dates: start: 20160604, end: 20160915
  2. GLIVEC [Suspect]
     Active Substance: IMATINIB MESYLATE
     Indication: CHRONIC MYELOID LEUKAEMIA
     Dosage: 200 MG, TWO TABLETS A DAY (400 QD))
     Route: 048
     Dates: start: 201606
  3. GLIVEC [Suspect]
     Active Substance: IMATINIB MESYLATE
     Dosage: 800 MG, (2 TABLETS OF 200 MG IN THE MORNING AND TABLETS OF 200 MG IN THE NIGHT)
     Route: 048
     Dates: start: 201608
  4. ACETAMINOPHEN. [Concomitant]
     Active Substance: ACETAMINOPHEN
     Indication: PRODUCT USED FOR UNKNOWN INDICATION
     Dosage: 500 MG, Q8H
     Route: 065
     Dates: start: 201604, end: 20160921

REACTIONS (9)
  - Splenomegaly [Unknown]
  - Infarction [Fatal]
  - Sepsis [Unknown]
  - Haemoglobin decreased [Unknown]
  - Furuncle [Unknown]
  - Pyrexia [Unknown]
  - Headache [Unknown]
  - Internal haemorrhage [Unknown]
  - Platelet count decreased [Unknown]

NARRATIVE: CASE EVENT DATE: 20160922
